FAERS Safety Report 17066907 (Version 1)
Quarter: 2019Q4

REPORT INFORMATION
  Report Type: Spontaneous
  Country: CN (occurrence: CN)
  Receive Date: 20191122
  Receipt Date: 20191122
  Transmission Date: 20200122
  Serious: Yes (Other)
  Sender: FDA-Public Use
  Company Number: CN-ASTRAZENECA-2019SF65160

PATIENT
  Age: 67 Year
  Sex: Male
  Weight: 62.5 kg

DRUGS (9)
  1. PANTOPRAZOLE SODIUM. [Suspect]
     Active Substance: PANTOPRAZOLE SODIUM
     Indication: PROPHYLAXIS
     Route: 041
     Dates: start: 20191022, end: 20191027
  2. XINHAINENG [Concomitant]
     Indication: SUPPLEMENTATION THERAPY
     Route: 041
     Dates: start: 20191022, end: 20191031
  3. NEXIUM [Suspect]
     Active Substance: ESOMEPRAZOLE MAGNESIUM
     Indication: PROPHYLAXIS
     Route: 048
     Dates: start: 20191029, end: 20191105
  4. MOTILIUM [Concomitant]
     Active Substance: DOMPERIDONE
     Indication: GASTROINTESTINAL MOTILITY DISORDER
     Route: 041
     Dates: start: 20191029, end: 20191106
  5. MARZULENE [Concomitant]
     Active Substance: SODIUM GUALENATE
     Indication: PROPHYLAXIS
     Dosage: 0.67G, 0.3 DAYS
     Route: 048
     Dates: start: 20191027, end: 20191105
  6. STILAMIN [Concomitant]
     Indication: SMALL INTESTINE CARCINOMA
     Route: 041
     Dates: start: 20191022, end: 20191029
  7. HUMAN SERUM ALBUMIN [Concomitant]
     Active Substance: ALBUMIN HUMAN
     Indication: SUPPLEMENTATION THERAPY
     Route: 041
     Dates: start: 20191022, end: 20191029
  8. FUROSEMIDE. [Suspect]
     Active Substance: FUROSEMIDE
     Indication: POLYURIA
     Route: 041
     Dates: start: 20191022, end: 20191030
  9. MITE [Concomitant]
     Indication: PROPHYLAXIS
     Route: 048
     Dates: start: 20191029, end: 20191106

REACTIONS (2)
  - Renal impairment [Recovering/Resolving]
  - Electrolyte imbalance [Unknown]

NARRATIVE: CASE EVENT DATE: 20191102
